FAERS Safety Report 18767863 (Version 1)
Quarter: 2021Q1

REPORT INFORMATION
  Report Type: Spontaneous
  Country: US (occurrence: US)
  Receive Date: 20210120
  Receipt Date: 20210120
  Transmission Date: 20210419
  Serious: Yes (Hospitalization)
  Sender: FDA-Public Use
  Company Number: None

PATIENT
  Age: 73 Year
  Sex: Male
  Weight: 97 kg

DRUGS (2)
  1. LISINOPRIL (LISINOPRIL 10MG TAB) [Suspect]
     Active Substance: LISINOPRIL
     Indication: HYPERTENSION
     Route: 048
     Dates: start: 20201001, end: 20201013
  2. LISINOPRIL (LISINOPRIL 10MG TAB) [Suspect]
     Active Substance: LISINOPRIL
     Indication: CORONARY ARTERIAL STENT INSERTION
     Route: 048
     Dates: start: 20201001, end: 20201013

REACTIONS (4)
  - Tongue blistering [None]
  - Glossodynia [None]
  - Odynophagia [None]
  - Angioedema [None]

NARRATIVE: CASE EVENT DATE: 20201013
